FAERS Safety Report 10176772 (Version 1)
Quarter: 2014Q2

REPORT INFORMATION
  Report Type: Spontaneous
  Country: US (occurrence: None)
  Receive Date: 20140515
  Receipt Date: 20140515
  Transmission Date: 20141212
  Serious: No
  Sender: FDA-Public Use
  Company Number: None

PATIENT
  Age: 32 Year
  Sex: Female
  Weight: 117.94 kg

DRUGS (2)
  1. DEPOMEDROL [Suspect]
     Indication: EAR INFECTION
     Dosage: DEPOMEDROL INTO THE MUSCLE
     Route: 030
     Dates: start: 20140506, end: 20140506
  2. DEPOMEDROL [Suspect]
     Indication: UPPER RESPIRATORY TRACT INFECTION
     Dosage: DEPOMEDROL INTO THE MUSCLE
     Route: 030
     Dates: start: 20140506, end: 20140506

REACTIONS (2)
  - Rash pruritic [None]
  - Activities of daily living impaired [None]
